FAERS Safety Report 13619452 (Version 1)
Quarter: 2017Q2

REPORT INFORMATION
  Report Type: Spontaneous
  Country: US (occurrence: US)
  Receive Date: 20170606
  Receipt Date: 20170606
  Transmission Date: 20170830
  Serious: No
  Sender: FDA-Public Use
  Company Number: None

PATIENT
  Age: 55 Year
  Sex: Male
  Weight: 87.75 kg

DRUGS (9)
  1. FARXIGA [Suspect]
     Active Substance: DAPAGLIFLOZIN PROPANEDIOL
     Indication: TYPE 2 DIABETES MELLITUS
     Dosage: ?          QUANTITY:1 TABLET(S);?
     Route: 048
     Dates: start: 20170530, end: 20170604
  2. METFORMIN [Concomitant]
     Active Substance: METFORMIN HYDROCHLORIDE
  3. NEURONTIN [Concomitant]
     Active Substance: GABAPENTIN
  4. FOLINIC [Concomitant]
  5. FISH OIL [Concomitant]
     Active Substance: FISH OIL
  6. ELAVIL [Concomitant]
     Active Substance: AMITRIPTYLINE HYDROCHLORIDE
  7. BABY ASPIRIN [Concomitant]
     Active Substance: ASPIRIN
  8. BYETTA [Concomitant]
     Active Substance: EXENATIDE
  9. LISINOPRIL. [Concomitant]
     Active Substance: LISINOPRIL

REACTIONS (4)
  - Dizziness [None]
  - Depressed mood [None]
  - Feeling abnormal [None]
  - Asthenia [None]

NARRATIVE: CASE EVENT DATE: 20170530
